FAERS Safety Report 11438890 (Version 1)
Quarter: 2015Q3

REPORT INFORMATION
  Report Type: Spontaneous
  Country: GB (occurrence: GB)
  Receive Date: 20150901
  Receipt Date: 20150901
  Transmission Date: 20151125
  Serious: Yes (Life-Threatening, Disabling)
  Sender: FDA-Public Use
  Company Number: GB-AUROBINDO-AUR-APL-2015-07572

PATIENT
  Age: 81 Year
  Sex: Female

DRUGS (5)
  1. SIMVASTATIN 40MG [Suspect]
     Active Substance: SIMVASTATIN
     Indication: TRANSIENT ISCHAEMIC ATTACK
     Dosage: 40 MG, UNK
     Route: 048
     Dates: start: 20090810, end: 20130424
  2. ATORVASTATIN [Suspect]
     Active Substance: ATORVASTATIN
     Indication: CARDIOVASCULAR EVENT PROPHYLAXIS
     Dosage: 10 MG, UNK
     Route: 048
     Dates: start: 20130426, end: 20150304
  3. LANSOPRAZOLE. [Concomitant]
     Active Substance: LANSOPRAZOLE
     Indication: PROPHYLAXIS
     Dosage: 30 MG, UNK
     Route: 048
     Dates: start: 20060131
  4. ATORVASTATIN [Suspect]
     Active Substance: ATORVASTATIN
     Indication: TRANSIENT ISCHAEMIC ATTACK
     Dosage: 20 MG, UNK
     Route: 048
     Dates: start: 20150304
  5. ADCAL D3 [Concomitant]
     Active Substance: CALCIUM CARBONATE\CHOLECALCIFEROL
     Indication: BONE DISORDER
     Dosage: 2 DF, TWO TIMES A DAY
     Route: 048
     Dates: start: 20130727

REACTIONS (4)
  - Pulmonary fibrosis [Not Recovered/Not Resolved]
  - Lower respiratory tract infection [Not Recovered/Not Resolved]
  - Crepitations [Not Recovered/Not Resolved]
  - Bronchiectasis [Not Recovered/Not Resolved]

NARRATIVE: CASE EVENT DATE: 201501
